FAERS Safety Report 5096642-3 (Version None)
Quarter: 2006Q3

REPORT INFORMATION
  Report Type: 
  Country: None (occurrence: None)
  Receive Date: 20060830
  Receipt Date: 20060824
  Transmission Date: 20061208
  Serious: Yes (Hospitalization, Other)
  Sender: FDA-Public Use
  Company Number: HQWYE956905JUN06

PATIENT
  Age: 26 Year
  Sex: Female

DRUGS (21)
  1. RAPAMUNE [Suspect]
     Indication: PROPHYLAXIS AGAINST TRANSPLANT REJECTION
     Dosage: 10 MG 1X PER 1 DAY ORAL
     Route: 048
     Dates: start: 20060523
  2. MYCOPHENOLATE MOFETIL [Concomitant]
  3. . [Concomitant]
  4. PREDNISONE TAB [Concomitant]
  5. . [Concomitant]
  6. . [Concomitant]
  7. . [Concomitant]
  8. NIFEDIPINE [Concomitant]
  9. FUROSEMIDE [Concomitant]
  10. HYDRAZIDE (HYDROCHLOROTHIAZIDE) [Concomitant]
  11. METHYLDOPA [Concomitant]
  12. DOXAZOSIN (DOXAZOSIN) [Concomitant]
  13. CLONIDINE [Concomitant]
  14. PROPRANOLOL [Concomitant]
  15. SULFAMETHOXAZOLE + TRIMETHOPRIM [Concomitant]
  16. ACYCLOVIR [Concomitant]
  17. NISTATIN (NYSTATIN) [Concomitant]
  18. RANITIDINE [Concomitant]
  19. MORPHINE [Concomitant]
  20. SODIUM BICARBONATE IN PLASTIC CONTAINER [Concomitant]
  21. LORAZEPAM [Concomitant]

REACTIONS (5)
  - HAEMODIALYSIS [None]
  - LUNG DISORDER [None]
  - PYREXIA [None]
  - RENAL TUBULAR NECROSIS [None]
  - SPUTUM PURULENT [None]
